FAERS Safety Report 22288508 (Version 1)
Quarter: 2023Q2

REPORT INFORMATION
  Report Type: Spontaneous
  Country: US (occurrence: US)
  Receive Date: 20230505
  Receipt Date: 20230505
  Transmission Date: 20230721
  Serious: Yes (Other)
  Sender: FDA-Public Use
  Company Number: US-PFIZER INC-202300176446

PATIENT
  Sex: Female

DRUGS (2)
  1. DEPO-MEDROL [Suspect]
     Active Substance: METHYLPREDNISOLONE ACETATE
     Indication: Rheumatoid arthritis
     Dosage: 40 MG/ML (INJECTION EVERY 90 DAYS)
     Route: 051
  2. TRAUMEEL [ACHILLEA MILLEFOLIUM;ACONITUM NAPELLUS;ARNICA MONTANA;ATROPA [Concomitant]
     Dosage: UNK

REACTIONS (3)
  - Cellulitis [Unknown]
  - Mixed connective tissue disease [Unknown]
  - Injection site haematoma [Unknown]
